FAERS Safety Report 7329322-1 (Version None)
Quarter: 2011Q1

REPORT INFORMATION
  Report Type: 
  Country: None (occurrence: None)
  Receive Date: 20110303
  Receipt Date: 20110222
  Transmission Date: 20110831
  Serious: Yes (Hospitalization)
  Sender: FDA-Public Use
  Company Number: PL-SANOFI-AVENTIS-2011SA011054

PATIENT
  Sex: Male

DRUGS (3)
  1. PETHIDINE HYDROCHLORIDE [Suspect]
     Indication: EXTRAVASATION
     Dates: start: 20101127, end: 20101206
  2. COPEGUS [Concomitant]
     Route: 048
     Dates: start: 20100805, end: 20101124
  3. PEGASYS [Suspect]
     Route: 003
     Dates: start: 20100805, end: 20101118

REACTIONS (1)
  - DELIRIUM [None]
